FAERS Safety Report 10778930 (Version 1)
Quarter: 2015Q1

REPORT INFORMATION
  Report Type: Spontaneous
  Country: NL (occurrence: NL)
  Receive Date: 20150210
  Receipt Date: 20150210
  Transmission Date: 20150721
  Serious: Yes (Other)
  Sender: FDA-Public Use
  Company Number: NL-ALVOGEN-2015AL000553

PATIENT
  Age: 11 Month
  Sex: Female

DRUGS (4)
  1. PROPRANOLOL [Concomitant]
     Active Substance: PROPRANOLOL\PROPRANOLOL HYDROCHLORIDE
     Indication: INFANTILE HAEMANGIOMA
  2. ATENOLOL. [Suspect]
     Active Substance: ATENOLOL
     Indication: INFANTILE HAEMANGIOMA
  3. ATENOLOL. [Suspect]
     Active Substance: ATENOLOL
     Indication: INFANTILE HAEMANGIOMA
  4. ATENOLOL. [Suspect]
     Active Substance: ATENOLOL
     Indication: INFANTILE HAEMANGIOMA

REACTIONS (1)
  - Syncope [Unknown]
